FAERS Safety Report 25949510 (Version 1)
Quarter: 2025Q4

REPORT INFORMATION
  Report Type: Spontaneous
  Country: US (occurrence: None)
  Receive Date: 20251022
  Receipt Date: 20251022
  Transmission Date: 20260117
  Serious: Yes (Death)
  Sender: FDA-CTU
  Company Number: None

PATIENT
  Age: 54 Year
  Sex: Male
  Weight: 84.3 kg

DRUGS (1)
  1. CEFTRIAXONE [Suspect]
     Active Substance: CEFTRIAXONE
     Indication: Pneumonia
     Dosage: OTHER FREQUENCY : 1 TIME;?
     Route: 040
     Dates: start: 20251010, end: 20251010

REACTIONS (2)
  - Acute myocardial infarction [None]
  - Anaphylactic reaction [None]

NARRATIVE: CASE EVENT DATE: 20251010
